FAERS Safety Report 8128379-8 (Version None)
Quarter: 2012Q1

REPORT INFORMATION
  Report Type: 
  Country: None (occurrence: None)
  Receive Date: 20120210
  Receipt Date: 20120127
  Transmission Date: 20120608
  Serious: Yes (Life-Threatening, Hospitalization)
  Sender: FDA-Public Use
  Company Number: JP-ROCHE-764889

PATIENT
  Sex: Male

DRUGS (18)
  1. ACTEMRA [Suspect]
     Route: 041
     Dates: start: 20090904, end: 20090904
  2. ISONIAZID [Concomitant]
     Route: 048
  3. ACTEMRA [Suspect]
     Route: 041
     Dates: start: 20090703, end: 20090703
  4. ACTEMRA [Suspect]
     Route: 041
     Dates: start: 20090731, end: 20090731
  5. PREDNISOLONE [Concomitant]
     Route: 048
  6. LANSOPRAZOLE [Concomitant]
     Route: 048
  7. ACTEMRA [Suspect]
     Route: 041
     Dates: start: 20090417, end: 20090417
  8. RHEUMATREX [Concomitant]
     Route: 048
  9. ACTEMRA [Suspect]
     Indication: RHEUMATOID ARTHRITIS
     Route: 041
  10. MUCOSTA [Concomitant]
     Route: 048
  11. PYDOXAL [Concomitant]
     Route: 048
  12. FOLIC ACID [Concomitant]
     Route: 048
  13. THEOPHYLLINE [Concomitant]
     Route: 048
  14. NATEGLINIDE [Concomitant]
     Route: 048
  15. ACTEMRA [Suspect]
     Route: 041
     Dates: start: 20090515, end: 20090515
  16. ACTEMRA [Suspect]
     Dosage: LAST DOSE: 24/FEB/2011
     Route: 041
     Dates: start: 20091002, end: 20110224
  17. PREDNISOLONE [Concomitant]
     Route: 048
  18. LOXONIN [Concomitant]
     Route: 048

REACTIONS (2)
  - PNEUMOCYSTIS JIROVECI PNEUMONIA [None]
  - INTERSTITIAL LUNG DISEASE [None]
